FAERS Safety Report 17115430 (Version 1)
Quarter: 2019Q4

REPORT INFORMATION
  Report Type: Spontaneous
  Country: US (occurrence: US)
  Receive Date: 20191204
  Receipt Date: 20191204
  Transmission Date: 20200122
  Serious: Yes (Hospitalization)
  Sender: FDA-Public Use
  Company Number: None

PATIENT
  Age: 81 Year
  Sex: Male
  Weight: 81.5 kg

DRUGS (3)
  1. AXITINIB [Concomitant]
     Active Substance: AXITINIB
     Dates: end: 20191113
  2. ATEZOLIZUMAB. [Suspect]
     Active Substance: ATEZOLIZUMAB
     Indication: RENAL CELL CARCINOMA
     Dates: start: 20191114, end: 20191126
  3. PEMBROLIZUMAB. [Concomitant]
     Active Substance: PEMBROLIZUMAB
     Dates: end: 20191113

REACTIONS (4)
  - Flushing [None]
  - Unresponsive to stimuli [None]
  - Chills [None]
  - Cough [None]

NARRATIVE: CASE EVENT DATE: 20191126
